FAERS Safety Report 5391883-X (Version None)
Quarter: 2007Q3

REPORT INFORMATION
  Report Type: 
  Country: None (occurrence: None)
  Receive Date: 20070718
  Receipt Date: 20070703
  Transmission Date: 20080115
  Serious: Yes (Hospitalization)
  Sender: FDA-Public Use
  Company Number: T200700754

PATIENT
  Age: 55 Year
  Sex: Female
  Weight: 67.1 kg

DRUGS (4)
  1. PAMELOR [Suspect]
  2. NORTRIPTYLINE HCL [Suspect]
     Indication: ANXIETY
     Dosage: ONE CAPSULE QPM, ORAL
     Route: 048
     Dates: start: 19880101
  3. NORTRIPTYLINE HCL [Suspect]
     Indication: PANIC ATTACK
     Dosage: ONE CAPSULE QPM, ORAL
     Route: 048
     Dates: start: 19880101
  4. MULTIVITAMIN [Concomitant]

REACTIONS (4)
  - BREAST ENLARGEMENT [None]
  - DRY MOUTH [None]
  - MUSCULOSKELETAL PAIN [None]
  - WEIGHT INCREASED [None]
